FAERS Safety Report 5761343-2 (Version None)
Quarter: 2008Q2

REPORT INFORMATION
  Report Type: 
  Country: None (occurrence: None)
  Receive Date: 20080606
  Receipt Date: 20080602
  Transmission Date: 20081010
  Serious: Yes (Other)
  Sender: FDA-Public Use
  Company Number: US-ASTRAZENECA-2008UW11043

PATIENT
  Age: 80 Year
  Sex: Female
  Weight: 61.2 kg

DRUGS (9)
  1. ARIMIDEX [Suspect]
     Indication: BREAST CANCER FEMALE
     Route: 048
     Dates: start: 19960101
  2. BONIVA [Concomitant]
  3. DIPRIMIDEROL [Concomitant]
  4. ASPIRIN [Concomitant]
  5. ARTHRITIS STRENGTH TYLENOL [Concomitant]
  6. CENTRUM SILVER [Concomitant]
  7. ASCORBIC ACID [Concomitant]
  8. VITAMIN E [Concomitant]
  9. CALCIUM [Concomitant]

REACTIONS (5)
  - FALL [None]
  - HEADACHE [None]
  - MUSCLE SPASMS [None]
  - OSTEOPOROSIS [None]
  - WRIST FRACTURE [None]
